FAERS Safety Report 8566288-0 (Version None)
Quarter: 2012Q3

REPORT INFORMATION
  Report Type: 
  Country: None (occurrence: None)
  Receive Date: 20120803
  Receipt Date: 20110817
  Transmission Date: 20120928
  Serious: No
  Sender: FDA-Public Use
  Company Number: US-ABBOTT-11P-163-0847462-00

PATIENT
  Sex: Female
  Weight: 68.1 kg

DRUGS (2)
  1. NIASPAN [Suspect]
     Indication: PRODUCT USED FOR UNKNOWN INDICATION
     Dosage: AT NIGHT AFTER ASA
     Dates: start: 20110809, end: 20110815
  2. ASPIRIN [Concomitant]
     Indication: PROPHYLAXIS
     Dosage: EVERY NIGHT BEFORE NIASPAN
     Dates: start: 20110809

REACTIONS (6)
  - SKIN BURNING SENSATION [None]
  - URTICARIA [None]
  - PRURITUS [None]
  - SWELLING [None]
  - HOT FLUSH [None]
  - URTICARIA PAPULAR [None]
